FAERS Safety Report 7485165-X (Version None)
Quarter: 2011Q2

REPORT INFORMATION
  Report Type: 
  Country: None (occurrence: None)
  Receive Date: 20110517
  Receipt Date: 20101203
  Transmission Date: 20111010
  Serious: Yes (Hospitalization)
  Sender: FDA-Public Use
  Company Number: US-BAYER-2010-006814

PATIENT
  Age: 18 Year
  Sex: Female
  Weight: 54.422 kg

DRUGS (5)
  1. YAZ [Suspect]
     Indication: CONTRACEPTION
     Dosage: UNK
     Dates: start: 20040101
  2. YAZ [Suspect]
     Indication: DYSMENORRHOEA
  3. YAZ [Suspect]
     Indication: PREMENSTRUAL SYNDROME
  4. NSAID'S [Concomitant]
  5. YAZ [Suspect]
     Indication: ACNE

REACTIONS (4)
  - VOMITING [None]
  - ABDOMINAL PAIN UPPER [None]
  - CHOLECYSTITIS CHRONIC [None]
  - NAUSEA [None]
